FAERS Safety Report 9159796 (Version 2)
Quarter: 2013Q2

REPORT INFORMATION
  Report Type: Spontaneous
  Country: US (occurrence: US)
  Receive Date: 20130313
  Receipt Date: 20130417
  Transmission Date: 20140414
  Serious: Yes (Death, Hospitalization, Other)
  Sender: FDA-Public Use
  Company Number: US-ASTELLAS-2013US002571

PATIENT
  Age: 66 Year
  Sex: Male

DRUGS (1)
  1. PROGRAF [Suspect]
     Indication: RENAL TRANSPLANT
     Dosage: 1 MG, BID
     Route: 048
     Dates: start: 20100116, end: 20120909

REACTIONS (7)
  - Hospitalisation [Unknown]
  - Respiratory failure [Fatal]
  - Central nervous system lymphoma [Fatal]
  - Sepsis [Fatal]
  - Bacterial infection [Fatal]
  - Renal failure [Unknown]
  - Fungal infection [Fatal]
